FAERS Safety Report 8117901-3 (Version None)
Quarter: 2012Q1

REPORT INFORMATION
  Report Type: 
  Country: None (occurrence: None)
  Receive Date: 20120131
  Receipt Date: 20120119
  Transmission Date: 20120608
  Serious: Yes (Other)
  Sender: FDA-Public Use
  Company Number: 1000026545

PATIENT
  Age: 90 Year
  Sex: Female
  Weight: 70 kg

DRUGS (11)
  1. ESCITALOPRAM OXALATE [Suspect]
     Indication: DEPRESSION
     Dosage: 15 MG (15 MG,1 IN 1 D),ORAL
     Route: 048
     Dates: start: 20060101
  2. FLUIDASA (MEPIRAMINA ACEFILINATO)(SOLUTION) [Suspect]
     Indication: RESPIRATORY TRACT INFECTION
     Dosage: 30 ML (30 ML, 1 IN 1 D),ORAL
     Route: 048
     Dates: start: 20111105, end: 20111107
  3. TEBETANE COMPUESTO(ALANINE, GLUTAMIC ACID, GLYCINE PRUNUS AFRICANA)(CA [Concomitant]
     Indication: URINARY INCONTINENCE
     Dosage: 33 DF (3 DOSAGE FORMS, 1 IN 1
     Dates: start: 20080101
  4. TARDYFERON (FERROUS SULFATE)(FERROUS SULFATE) [Concomitant]
  5. MEMANTINE HCL [Suspect]
     Indication: DEMENTIA ALZHEIMER'S TYPE
     Dosage: 20 MG (20 MG, 1 IN 1 D), ORAL
     Route: 048
     Dates: start: 20090101
  6. PARIET (RABEPRAZOLE SODIUM)(TABLETS)(RABEPRAZOLE SODIUM) [Concomitant]
  7. FLUIDASA (MEPIRAMINA ACEFILINATO)(SOLUTION) [Suspect]
     Indication: RESPIRATORY TRACT INFECTION
  8. SUTRIL NEO (TORASEMIDE)(TABLETS)(TORASEMIDE) [Concomitant]
  9. LEKOVIT CA(CALCIUM CARBONATE, COLECALCIFEROL)(TABLETS)(CALCIUM CARBONA [Concomitant]
  10. BONVIVA(IBANDRONIC ACID)(150 MILLIGRAM, TABLETS)(IBANDRONIC ACID) [Concomitant]
  11. PRITOR (TELMISARTAN)(TABLETS)(TELMISARTAN) [Concomitant]

REACTIONS (3)
  - TREMOR [None]
  - DRUG INTERACTION [None]
  - DELIRIUM [None]
